FAERS Safety Report 19201010 (Version 1)
Quarter: 2021Q2

REPORT INFORMATION
  Report Type: Spontaneous
  Country: FR (occurrence: FR)
  Receive Date: 20210430
  Receipt Date: 20210430
  Transmission Date: 20210717
  Serious: Yes (Other)
  Sender: FDA-Public Use
  Company Number: FR-ROCHE-2817672

PATIENT
  Age: 24 Year
  Sex: Female
  Weight: 60 kg

DRUGS (8)
  1. DIAZEPAM. [Suspect]
     Active Substance: DIAZEPAM
     Indication: PRODUCT USED FOR UNKNOWN INDICATION
     Route: 065
  2. NARDIL [Suspect]
     Active Substance: PHENELZINE SULFATE
     Indication: DEPRESSION
     Route: 048
     Dates: start: 20210223, end: 20210308
  3. NARDIL [Suspect]
     Active Substance: PHENELZINE SULFATE
     Route: 048
     Dates: start: 20210217, end: 20210223
  4. LEVOTHYROX [Concomitant]
     Active Substance: LEVOTHYROXINE
  5. QUETIAPINE FUMARATE. [Concomitant]
     Active Substance: QUETIAPINE FUMARATE
  6. TERALITHE [Concomitant]
     Active Substance: LITHIUM CARBONATE
  7. LAMICTAL [Concomitant]
     Active Substance: LAMOTRIGINE
  8. TERCIAN [Concomitant]
     Active Substance: CYAMEMAZINE

REACTIONS (5)
  - Somnolence [Recovered/Resolved]
  - Vertigo [Recovered/Resolved]
  - Amnesia [Recovered/Resolved]
  - Confusional state [Recovered/Resolved]
  - Nausea [Recovered/Resolved]

NARRATIVE: CASE EVENT DATE: 20210308
